FAERS Safety Report 19879060 (Version 1)
Quarter: 2021Q3

REPORT INFORMATION
  Report Type: Spontaneous
  Country: US (occurrence: US)
  Receive Date: 20210923
  Receipt Date: 20210923
  Transmission Date: 20211014
  Serious: Yes (Other)
  Sender: FDA-Public Use
  Company Number: US-ASTRAZENECA-2021A733191

PATIENT

DRUGS (1)
  1. LYNPARZA [Suspect]
     Active Substance: OLAPARIB
     Route: 048

REACTIONS (6)
  - Viral infection [Unknown]
  - Vomiting [Unknown]
  - Ill-defined disorder [Unknown]
  - Nausea [Unknown]
  - Gastrointestinal disorder [Unknown]
  - Leukaemia [Unknown]
